FAERS Safety Report 15768590 (Version 1)
Quarter: 2018Q4

REPORT INFORMATION
  Report Type: Report from Study
  Country: US (occurrence: US)
  Receive Date: 20181227
  Receipt Date: 20181227
  Transmission Date: 20190205
  Serious: Yes (Hospitalization)
  Sender: FDA-Public Use
  Company Number: US-BAXTER-2018BAX031123

PATIENT
  Sex: Female
  Weight: 64.9 kg

DRUGS (16)
  1. ONCASPAR [Suspect]
     Active Substance: PEGASPARGASE
     Indication: B PRECURSOR TYPE ACUTE LEUKAEMIA
     Dosage: ON DAY 14
     Route: 065
     Dates: start: 20181016, end: 20181016
  2. LOVENOX [Concomitant]
     Active Substance: ENOXAPARIN SODIUM
     Indication: DEEP VEIN THROMBOSIS
     Route: 065
     Dates: end: 20181021
  3. CYCLOPHOSPHAMIDE FOR INJECTION, USP [Suspect]
     Active Substance: CYCLOPHOSPHAMIDE
     Indication: B PRECURSOR TYPE ACUTE LEUKAEMIA
     Route: 065
     Dates: start: 20181003, end: 20181003
  4. CYCLOPHOSPHAMIDE FOR INJECTION, USP [Suspect]
     Active Substance: CYCLOPHOSPHAMIDE
     Dosage: FIRST COURSE
     Route: 065
  5. ONCASPAR [Suspect]
     Active Substance: PEGASPARGASE
     Dosage: FIRST COURSE
     Route: 065
  6. CYTARABINE. [Suspect]
     Active Substance: CYTARABINE
     Indication: B PRECURSOR TYPE ACUTE LEUKAEMIA
     Dosage: ON DAYS 1-4 (03OCT2018-06OCT2018) AND ON DAYS 7-10 (09OCT2018-12OCT2018), TOTAL DOSE ADMINISTERED TH
     Route: 065
     Dates: start: 20181003, end: 20181006
  7. METHOTREXATE SODIUM. [Suspect]
     Active Substance: METHOTREXATE SODIUM
     Dosage: ON DAY 1, DAY 7, DAY 14, AND DAY 21, TOTAL DOSE ADMINISTERED THIS COURSE 60 MG
     Route: 037
     Dates: start: 20181009, end: 20181009
  8. VINCRISTINE SULFATE. [Suspect]
     Active Substance: VINCRISTINE SULFATE
     Dosage: ON DAY 14 (16OCT2018) AND ON DAY 21 (23OCT2018), TOTAL DOSE ADMINISTERED THIS COURSE 4 MG
     Route: 042
     Dates: start: 20181023, end: 20181023
  9. CYTARABINE. [Suspect]
     Active Substance: CYTARABINE
     Dosage: ON DAYS 1-4 (03OCT2018-06OCT2018) AND DAYS 7-10 (09OCT2018-12OCT2018), TOTAL DOSE ADMINISTERED THIS
     Route: 065
     Dates: start: 20181009, end: 20181012
  10. CYTARABINE. [Suspect]
     Active Substance: CYTARABINE
     Dosage: FIRST COURSE
     Route: 065
  11. METHOTREXATE SODIUM. [Suspect]
     Active Substance: METHOTREXATE SODIUM
     Indication: B PRECURSOR TYPE ACUTE LEUKAEMIA
     Dosage: ON DAY 1, DAY 7, DAY 14, AND DAY 21, TOTAL DOSE ADMINISTERED THIS COURSE 60 MG
     Route: 037
     Dates: start: 20181003, end: 20181003
  12. METHOTREXATE SODIUM. [Suspect]
     Active Substance: METHOTREXATE SODIUM
     Dosage: ON DAY 1, DAY 7, DAY 14, AND DAY 21, TOTAL DOSE ADMINISTERED THIS COURSE 60 MG
     Route: 037
     Dates: start: 20181016, end: 20181016
  13. VINCRISTINE SULFATE. [Suspect]
     Active Substance: VINCRISTINE SULFATE
     Indication: B PRECURSOR TYPE ACUTE LEUKAEMIA
     Dosage: ON DAY 14 (16OCT2018) AND ON DAY 21 (23OCT2018), TOTAL DOSE ADMINISTERED THIS COURSE 4 MG
     Route: 042
     Dates: start: 20181016, end: 20181016
  14. METHOTREXATE SODIUM. [Suspect]
     Active Substance: METHOTREXATE SODIUM
     Dosage: FIRST COURSE
     Route: 037
  15. METHOTREXATE SODIUM. [Suspect]
     Active Substance: METHOTREXATE SODIUM
     Dosage: ON DAY 1, DAY 7, DAY 14, AND DAY 21, TOTAL DOSE ADMINISTERED THIS COURSE 60 MG
     Route: 037
     Dates: start: 20181023, end: 20181023
  16. VINCRISTINE SULFATE. [Suspect]
     Active Substance: VINCRISTINE SULFATE
     Dosage: FIRST COURSE
     Route: 042

REACTIONS (3)
  - Intracranial venous sinus thrombosis [Recovered/Resolved]
  - Subdural haematoma [Recovered/Resolved]
  - Cerebral venous thrombosis [Recovered/Resolved]

NARRATIVE: CASE EVENT DATE: 20181023
